FAERS Safety Report 7743600-3 (Version None)
Quarter: 2011Q3

REPORT INFORMATION
  Report Type: 
  Country: None (occurrence: None)
  Receive Date: 20110912
  Receipt Date: 20110906
  Transmission Date: 20111222
  Serious: Yes (Hospitalization)
  Sender: FDA-Public Use
  Company Number: BE-SANOFI-AVENTIS-2011SA057720

PATIENT
  Age: 75 Year
  Sex: Male

DRUGS (8)
  1. DOCETAXEL [Suspect]
     Route: 042
     Dates: start: 20110704, end: 20110704
  2. CRESTOR [Concomitant]
     Dosage: DOSE:1 UNIT(S)
     Route: 048
  3. ASAFLOW [Concomitant]
     Route: 048
  4. ELTHYRONE [Concomitant]
     Indication: THYROIDECTOMY
     Route: 048
  5. CISPLATIN [Concomitant]
     Indication: NON-SMALL CELL LUNG CANCER
     Route: 042
     Dates: start: 20110704, end: 20110704
  6. COZAAR [Concomitant]
     Route: 048
  7. AMLODIPINE BESYLATE [Concomitant]
     Route: 048
  8. ASAFLOW [Concomitant]
     Indication: CARDIOVASCULAR DISORDER
     Route: 048

REACTIONS (8)
  - VOMITING [None]
  - RENAL FAILURE ACUTE [None]
  - NEUTROPENIA [None]
  - NAUSEA [None]
  - MUCOSAL INFLAMMATION [None]
  - DIARRHOEA [None]
  - HYPOKALAEMIA [None]
  - ASTHENIA [None]
